FAERS Safety Report 5112668-5 (Version None)
Quarter: 2006Q3

REPORT INFORMATION
  Report Type: 
  Country: None (occurrence: None)
  Receive Date: 20060802
  Receipt Date: 20060418
  Transmission Date: 20061208
  Serious: No
  Sender: FDA-Public Use
  Company Number: 200613630US

PATIENT
  Age: 81 Year
  Sex: Female

DRUGS (10)
  1. KETEK [Suspect]
     Indication: ABDOMINAL PAIN
     Dosage: 400 MG QD PO
     Route: 048
     Dates: start: 20040904
  2. KETEK [Suspect]
     Indication: ABDOMINAL PAIN
     Dosage: 800 MG QD PO
     Route: 048
     Dates: start: 20041104, end: 20041111
  3. BEXTRA [Concomitant]
  4. DIOVAN [Concomitant]
  5. RABEPRAZOLE SODIUM (ACIPHEX) [Concomitant]
  6. CYPROHEPTADINE HYDROCHLORIDE (PERIACTIN) HYDROCODONE [Concomitant]
  7. PHENOBARBITAL TAB [Concomitant]
  8. ATROPINE SULFATE [Concomitant]
  9. HYOSCINE HBR HYT [Concomitant]
  10. HYOSCYAMINE SULFATE (DONNATAL) [Concomitant]

REACTIONS (7)
  - ABDOMINAL DISCOMFORT [None]
  - ABDOMINAL PAIN LOWER [None]
  - APPENDIX DISORDER [None]
  - COLONIC POLYP [None]
  - DIVERTICULUM [None]
  - HELICOBACTER GASTRITIS [None]
  - OCCULT BLOOD POSITIVE [None]
